FAERS Safety Report 16229624 (Version 1)
Quarter: 2019Q2

REPORT INFORMATION
  Report Type: Spontaneous
  Country: GB (occurrence: GB)
  Receive Date: 20190423
  Receipt Date: 20190423
  Transmission Date: 20190711
  Serious: Yes (Other)
  Sender: FDA-Public Use
  Company Number: GB-PFIZER INC-2019166268

PATIENT
  Sex: Male

DRUGS (3)
  1. ATIVAN [Suspect]
     Active Substance: LORAZEPAM
     Indication: ANXIETY
     Dosage: UNK
     Route: 065
  2. VALIUM [Suspect]
     Active Substance: DIAZEPAM
     Indication: ANXIETY
     Dosage: UNK
     Route: 065
     Dates: end: 1990
  3. VALIUM [Suspect]
     Active Substance: DIAZEPAM
     Indication: SLEEP DISORDER

REACTIONS (4)
  - Brain injury [Unknown]
  - Disturbance in attention [Unknown]
  - Memory impairment [Unknown]
  - Amnesia [Unknown]
